FAERS Safety Report 4528532-6 (Version None)
Quarter: 2004Q4

REPORT INFORMATION
  Report Type: 
  Country: None (occurrence: None)
  Receive Date: 20041216
  Receipt Date: 20040917
  Transmission Date: 20050328
  Serious: No
  Sender: FDA-Public Use
  Company Number: US-BRISTOL-MYERS SQUIBB COMPANY-12705943

PATIENT
  Age: 71 Year
  Sex: Female
  Weight: 95 kg

DRUGS (6)
  1. QUESTRAN [Suspect]
     Dosage: 1 SCOOP THREE TIMES DAILY
  2. TENORMIN [Concomitant]
  3. LOTREL [Concomitant]
  4. RANITIDINE [Concomitant]
  5. LIPITOR [Concomitant]
  6. TRIAMTERENE AND HYDROCHLOROTHIAZIDE [Concomitant]

REACTIONS (1)
  - DIARRHOEA [None]
